FAERS Safety Report 5945713-5 (Version None)
Quarter: 2008Q4

REPORT INFORMATION
  Report Type: 
  Country: None (occurrence: None)
  Receive Date: 20081107
  Receipt Date: 20081031
  Transmission Date: 20090506
  Serious: Yes (Other)
  Sender: FDA-Public Use
  Company Number: IT-GENENTECH-270992

PATIENT
  Age: 75 Year
  Sex: Male

DRUGS (4)
  1. MABTHERA [Suspect]
     Indication: B-CELL LYMPHOMA
  2. FLUDARABINE PHOSPHATE [Suspect]
     Indication: B-CELL LYMPHOMA
     Dosage: 25 MG/M2, UNK
  3. MITOXANTRONE [Suspect]
     Indication: B-CELL LYMPHOMA
     Dosage: 10 MG/M2, UNK
  4. DEXAMETHASONE [Suspect]
     Indication: B-CELL LYMPHOMA
     Dosage: 20 MG, UNK

REACTIONS (1)
  - ACUTE MYELOID LEUKAEMIA [None]
